FAERS Safety Report 9162492 (Version 1)
Quarter: 2013Q1

REPORT INFORMATION
  Report Type: Spontaneous
  Country: FR (occurrence: None)
  Receive Date: 20130215
  Receipt Date: 20130215
  Transmission Date: 20140127
  Serious: Yes (Hospitalization)
  Sender: FDA-Public Use
  Company Number: 2013000022

PATIENT
  Age: 82 Year
  Sex: Male

DRUGS (3)
  1. ACEON (PERINDOPRIL ERBUMINE) TABLET [Suspect]
     Indication: PRODUCT USED FOR UNKNOWN INDICATION
     Route: 048
     Dates: start: 20130109, end: 20130115
  2. LOVENOX (ENOXAPARIN SODIUM) [Suspect]
     Dates: start: 20121228, end: 20130115
  3. FLUDEX [Suspect]
     Dates: start: 20130109

REACTIONS (2)
  - Pruritus [None]
  - Rash maculo-papular [None]
